FAERS Safety Report 7283916-0 (Version None)
Quarter: 2011Q1

REPORT INFORMATION
  Report Type: 
  Country: None (occurrence: None)
  Receive Date: 20110209
  Receipt Date: 20110128
  Transmission Date: 20110831
  Serious: Yes (Other)
  Sender: FDA-Public Use
  Company Number: PHHY2011GB06763

PATIENT
  Age: 51 Year

DRUGS (7)
  1. METFORMIN HCL [Suspect]
     Dosage: 1500 MG, UNK
  2. COLCHICINE [Concomitant]
     Dosage: 1 MG, UNK
  3. ALLOPURINOL [Concomitant]
     Dosage: 300 MG, UNK
  4. VALSARTAN [Concomitant]
     Dosage: 120 MG, UNK
  5. MIRTAZAPINE [Suspect]
     Indication: DEPRESSION
     Dosage: UNK
  6. CETRIZINE [Concomitant]
     Dosage: 10 MG, UNK
  7. DOXAZOSIN [Suspect]
     Dosage: 4 MG, UNK

REACTIONS (1)
  - PANCREATITIS ACUTE [None]
